FAERS Safety Report 5533827-3 (Version None)
Quarter: 2007Q4

REPORT INFORMATION
  Report Type: 
  Country: None (occurrence: None)
  Receive Date: 20071129
  Receipt Date: 20071114
  Transmission Date: 20080405
  Serious: Yes (Death)
  Sender: FDA-Public Use
  Company Number: 100#08#2007-04729

PATIENT
  Age: 9 Year
  Sex: Female

DRUGS (1)
  1. METHOTREXATE [Suspect]
     Indication: MEDULLOBLASTOMA
     Dosage: INTRATHECAL, INTRAVENOUS
     Route: 037

REACTIONS (4)
  - CONVULSION [None]
  - GLIOMA [None]
  - INTRACRANIAL PRESSURE INCREASED [None]
  - NERVOUS SYSTEM DISORDER [None]
